FAERS Safety Report 6589933-8 (Version None)
Quarter: 2010Q1

REPORT INFORMATION
  Report Type: 
  Country: None (occurrence: None)
  Receive Date: 20100219
  Receipt Date: 20100209
  Transmission Date: 20100710
  Serious: Yes (Other)
  Sender: FDA-Public Use
  Company Number: US-TYCO HEALTHCARE/MALLINCKRODT-T201000626

PATIENT
  Age: 4 Year
  Sex: Male

DRUGS (4)
  1. OPTIRAY 350 [Suspect]
     Indication: CATHETERISATION CARDIAC
     Dosage: UNK
  2. OPTIRAY 350 [Suspect]
     Dosage: UNK
  3. OPTIRAY 350 [Suspect]
     Dosage: UNK
  4. BETA-LACTAM-CONTAINING ANTIBIOTIC [Concomitant]
     Dosage: UNK

REACTIONS (1)
  - ACUTE GENERALISED EXANTHEMATOUS PUSTULOSIS [None]
